FAERS Safety Report 5133308-5 (Version None)
Quarter: 2006Q4

REPORT INFORMATION
  Report Type: 
  Country: None (occurrence: None)
  Receive Date: 20060831
  Receipt Date: 20060526
  Transmission Date: 20070319
  Serious: No
  Sender: FDA-Public Use
  Company Number: 2006-BP-03620BP

PATIENT
  Age: 68 Year
  Sex: Female

DRUGS (15)
  1. SPIRIVA [Suspect]
     Indication: BRONCHIECTASIS
     Dosage: 18 MCG (18 MCG,1 CAPSULE QD),IH
     Dates: start: 20051115
  2. SPIRIVA [Suspect]
  3. ALBUTEROL [Concomitant]
  4. TRIAMTERENE AND HYDROCHLOROTHIAZIDE [Concomitant]
  5. MOBIC [Concomitant]
  6. DOXEPIN HCL [Concomitant]
  7. NEXIUM [Concomitant]
  8. DOMPERIDONE (DOMPERIDONE) [Concomitant]
  9. ESTRACE [Concomitant]
  10. CALCIUM + D [Concomitant]
  11. COATED ASPIRIN (ACETYLSALICYLIC ACID) [Concomitant]
  12. MULTI-VITAMIN [Concomitant]
  13. FLAX OIL [Concomitant]
  14. NASAL RINSE [Concomitant]
  15. NASAREL (FLUNISOLIDE) [Concomitant]

REACTIONS (1)
  - DYSGEUSIA [None]
